FAERS Safety Report 4381716-2 (Version None)
Quarter: 2004Q2

REPORT INFORMATION
  Report Type: 
  Country: None (occurrence: None)
  Receive Date: 20040603
  Receipt Date: 20031006
  Transmission Date: 20050107
  Serious: Yes (Other)
  Sender: FDA-Public Use
  Company Number: 200316643US

PATIENT
  Age: 77 Year
  Sex: Male
  Weight: 82 kg

DRUGS (12)
  1. LOVENOX [Suspect]
     Indication: ACUTE CORONARY SYNDROME
     Dosage: 70 MG Q12H SC
     Route: 058
     Dates: start: 20030505, end: 20030506
  2. IMDUR [Concomitant]
  3. ASPIRIN [Concomitant]
  4. NORVASC [Concomitant]
  5. LIPITOR [Concomitant]
  6. ZETIA [Concomitant]
  7. ATENOLOL [Concomitant]
  8. CELEXA [Concomitant]
  9. CELEBREX [Concomitant]
  10. ALTACE [Concomitant]
  11. ATIVAN [Concomitant]
  12. NITROGLYCERIN [Concomitant]

REACTIONS (1)
  - ABDOMINAL HAEMATOMA [None]
